FAERS Safety Report 14297249 (Version 1)
Quarter: 2017Q4

REPORT INFORMATION
  Report Type: Spontaneous
  Country: US (occurrence: US)
  Receive Date: 20171218
  Receipt Date: 20171218
  Transmission Date: 20180321
  Serious: No
  Sender: FDA-Public Use
  Company Number: US-SEPTODONT-201704152

PATIENT

DRUGS (1)
  1. MEPIVACAINE [Suspect]
     Active Substance: MEPIVACAINE\MEPIVACAINE HYDROCHLORIDE
     Indication: LOCAL ANAESTHESIA
     Dosage: ATTEMPTED SEVERAL INJECTIONS OVER A PERIOD OF TIME (MORE THAN 60 MINUTES) IN THE LEFT MANDIBULAR
     Route: 004

REACTIONS (2)
  - Hypoaesthesia oral [Unknown]
  - Inadequate analgesia [Unknown]
